FAERS Safety Report 8565859-5 (Version None)
Quarter: 2012Q3

REPORT INFORMATION
  Report Type: 
  Country: None (occurrence: None)
  Receive Date: 20120803
  Receipt Date: 20111007
  Transmission Date: 20120928
  Serious: No
  Sender: FDA-Public Use
  Company Number: US-ABBOTT-11P-163-0862271-00

PATIENT
  Sex: Male
  Weight: 93.07 kg

DRUGS (14)
  1. ZOLPIDEM [Concomitant]
     Indication: INSOMNIA
  2. ZINC SULFATE [Concomitant]
     Indication: PRODUCT USED FOR UNKNOWN INDICATION
  3. APPLE CIDER [Concomitant]
     Indication: ARTHRITIS
  4. MAGNESIUM [Concomitant]
     Indication: PRODUCT USED FOR UNKNOWN INDICATION
  5. ASCORBIC ACID [Concomitant]
     Indication: PRODUCT USED FOR UNKNOWN INDICATION
  6. ASPIRIN [Concomitant]
     Indication: PRODUCT USED FOR UNKNOWN INDICATION
  7. OMEPRAZOLE [Concomitant]
     Indication: GASTROOESOPHAGEAL REFLUX DISEASE
  8. NIASPAN [Suspect]
     Indication: BLOOD CHOLESTEROL INCREASED
     Dosage: 500 MG
     Dates: start: 20110901
  9. CINNAMON [Concomitant]
     Indication: PRODUCT USED FOR UNKNOWN INDICATION
  10. GUAIFENISEN [Concomitant]
     Indication: HYPERSENSITIVITY
  11. XYZAL [Concomitant]
     Indication: HYPERSENSITIVITY
  12. FISH OIL [Concomitant]
     Indication: PRODUCT USED FOR UNKNOWN INDICATION
  13. GOLDEN SEAL EXTRACT [Concomitant]
     Indication: PRODUCT USED FOR UNKNOWN INDICATION
  14. B 100 [Concomitant]
     Indication: PRODUCT USED FOR UNKNOWN INDICATION

REACTIONS (7)
  - MYALGIA [None]
  - HOT FLUSH [None]
  - FLUSHING [None]
  - FEELING HOT [None]
  - DIZZINESS [None]
  - INSOMNIA [None]
  - HEADACHE [None]
